FAERS Safety Report 6808188-X (Version None)
Quarter: 2010Q2

REPORT INFORMATION
  Report Type: 
  Country: None (occurrence: None)
  Receive Date: 20100629
  Receipt Date: 20090430
  Transmission Date: 20101027
  Serious: No
  Sender: FDA-Public Use
  Company Number: US-PFIZER INC-2009206672

PATIENT
  Age: 47 Year
  Sex: Male
  Weight: 101.6 kg

DRUGS (6)
  1. VIAGRA [Suspect]
     Indication: ERECTILE DYSFUNCTION
     Dosage: 50 MG, AS NEEDED
     Dates: start: 20090429
  2. EFFEXOR [Concomitant]
  3. METOPROLOL [Concomitant]
     Dosage: UNK
  4. PROTONIX [Concomitant]
     Dosage: UNK
  5. ACETYLSALICYLIC ACID [Concomitant]
     Dosage: UNK
  6. CYMBALTA [Concomitant]
     Indication: ANXIETY

REACTIONS (2)
  - DRUG INEFFECTIVE [None]
  - OCULAR HYPERAEMIA [None]
